FAERS Safety Report 5393571-2 (Version None)
Quarter: 2007Q3

REPORT INFORMATION
  Report Type: 
  Country: None (occurrence: None)
  Receive Date: 20070723
  Receipt Date: 20060830
  Transmission Date: 20080115
  Serious: No
  Sender: FDA-Public Use
  Company Number: A0618629A

PATIENT
  Age: 62 Year
  Sex: Male

DRUGS (11)
  1. AVANDIA [Suspect]
     Dosage: 4MG PER DAY
     Route: 048
     Dates: start: 20000101
  2. WATER PILL [Concomitant]
  3. CALCIUM CHLORIDE [Concomitant]
  4. HYZAAR [Concomitant]
  5. NORVASC [Concomitant]
  6. ATENOLOL [Concomitant]
  7. VYTORIN [Concomitant]
  8. CALCITRIOL [Concomitant]
  9. VITAMIN D [Concomitant]
  10. SLEEPING PILL [Concomitant]
  11. UNKNOWN MEDICATION [Concomitant]
     Indication: ANXIETY

REACTIONS (1)
  - WEIGHT INCREASED [None]
